FAERS Safety Report 9217488 (Version 1)
Quarter: 2013Q2

REPORT INFORMATION
  Report Type: Spontaneous
  Country: GB (occurrence: GB)
  Receive Date: 20130408
  Receipt Date: 20130408
  Transmission Date: 20140414
  Serious: Yes (Other)
  Sender: FDA-Public Use
  Company Number: GB-ALEXION PHARMACEUTICALS INC.-A201300723

PATIENT
  Age: 54 Year
  Sex: Male

DRUGS (1)
  1. SOLIRIS 300MG [Suspect]
     Indication: TRANSPLANT REJECTION
     Dosage: 600 MG, UNK
     Route: 042
     Dates: start: 2012

REACTIONS (3)
  - Nephrectomy [Unknown]
  - Renal haemangioma [Unknown]
  - Renal cortical necrosis [Unknown]
